FAERS Safety Report 18852826 (Version 1)
Quarter: 2021Q1

REPORT INFORMATION
  Report Type: Spontaneous
  Country: US (occurrence: US)
  Receive Date: 20210205
  Receipt Date: 20210205
  Transmission Date: 20210420
  Serious: Yes (Other)
  Sender: FDA-Public Use
  Company Number: US-ELI_LILLY_AND_COMPANY-US202101011401

PATIENT
  Age: 63 Year
  Sex: Male

DRUGS (12)
  1. HUMALOG [Suspect]
     Active Substance: INSULIN LISPRO
     Dosage: 15 U, UNKNOWN
     Route: 065
  2. HUMALOG [Suspect]
     Active Substance: INSULIN LISPRO
     Indication: PRODUCT USED FOR UNKNOWN INDICATION
     Dosage: 8 U, UNKNOWN
     Route: 065
     Dates: start: 202011
  3. LANTUS [Concomitant]
     Active Substance: INSULIN GLARGINE
     Indication: PRODUCT USED FOR UNKNOWN INDICATION
  4. HUMALOG [Suspect]
     Active Substance: INSULIN LISPRO
     Dosage: 15 U, UNKNOWN
     Route: 065
  5. HUMALOG [Suspect]
     Active Substance: INSULIN LISPRO
     Dosage: 15 U, UNKNOWN
     Route: 065
  6. HUMALOG [Suspect]
     Active Substance: INSULIN LISPRO
     Dosage: 15 U, UNKNOWN
     Route: 065
  7. HUMALOG [Suspect]
     Active Substance: INSULIN LISPRO
     Dosage: 15 U, UNKNOWN
     Route: 065
  8. HUMALOG [Suspect]
     Active Substance: INSULIN LISPRO
     Dosage: 15 U, UNKNOWN
     Route: 065
  9. HUMALOG [Suspect]
     Active Substance: INSULIN LISPRO
     Indication: PRODUCT USED FOR UNKNOWN INDICATION
     Dosage: 11 U, UNKNOWN
     Route: 065
     Dates: start: 2001
  10. HUMALOG [Suspect]
     Active Substance: INSULIN LISPRO
     Indication: PRODUCT USED FOR UNKNOWN INDICATION
     Dosage: 11 U, UNKNOWN
     Route: 065
     Dates: start: 2001
  11. HUMALOG [Suspect]
     Active Substance: INSULIN LISPRO
     Indication: PRODUCT USED FOR UNKNOWN INDICATION
     Dosage: 11 U, UNKNOWN
     Route: 065
     Dates: start: 2001
  12. HUMALOG [Suspect]
     Active Substance: INSULIN LISPRO
     Dosage: 15 U, UNKNOWN
     Route: 065

REACTIONS (4)
  - Choking [Not Recovered/Not Resolved]
  - Weight decreased [Unknown]
  - Blood glucose increased [Unknown]
  - Drug ineffective [Unknown]

NARRATIVE: CASE EVENT DATE: 202006
